FAERS Safety Report 4739617-3 (Version None)
Quarter: 2005Q3

REPORT INFORMATION
  Report Type: 
  Country: None (occurrence: None)
  Receive Date: 20050810
  Receipt Date: 20050413
  Transmission Date: 20060218
  Serious: No
  Sender: FDA-Public Use
  Company Number: US-GLAXOSMITHKLINE-A0554029A

PATIENT
  Age: 57 Year
  Sex: Male

DRUGS (5)
  1. PAXIL [Suspect]
     Dosage: 10MG PER DAY
     Route: 048
     Dates: start: 20050412
  2. PAXIL CR [Suspect]
     Dosage: 12.5MG SEE DOSAGE TEXT
     Route: 048
  3. HYDROGESIC [Concomitant]
     Route: 065
  4. FLOMAX [Concomitant]
  5. PROSCAR [Concomitant]

REACTIONS (4)
  - DIZZINESS [None]
  - NAUSEA [None]
  - STOMACH DISCOMFORT [None]
  - THERAPEUTIC RESPONSE DECREASED [None]
